FAERS Safety Report 24798518 (Version 1)
Quarter: 2025Q1

REPORT INFORMATION
  Report Type: Spontaneous
  Country: CA (occurrence: CA)
  Receive Date: 20250102
  Receipt Date: 20250102
  Transmission Date: 20250409
  Serious: Yes (Other)
  Sender: TEVA
  Company Number: CA-TEVA-VS-3282041

PATIENT
  Age: 48 Year
  Sex: Female

DRUGS (6)
  1. ZOLEDRONIC ACID [Suspect]
     Active Substance: ZOLEDRONIC ACID
     Indication: Metastases to bone
     Route: 065
  2. ZOLEDRONIC ACID [Suspect]
     Active Substance: ZOLEDRONIC ACID
     Indication: Metastases to bone
     Route: 042
  3. GOSERELIN [Concomitant]
     Active Substance: GOSERELIN
     Indication: Metastases to bone
     Route: 065
  4. GOSERELIN [Concomitant]
     Active Substance: GOSERELIN
     Indication: Metastases to bone
     Route: 058
  5. PALBOCICLIB ISETHIONATE [Concomitant]
     Active Substance: PALBOCICLIB ISETHIONATE
     Indication: Metastases to bone
     Route: 065
  6. PALBOCICLIB ISETHIONATE [Concomitant]
     Active Substance: PALBOCICLIB ISETHIONATE
     Indication: Metastases to bone
     Route: 065

REACTIONS (2)
  - Uveitis [Recovered/Resolved]
  - Periorbital inflammation [Recovered/Resolved]
